FAERS Safety Report 21492993 (Version 2)
Quarter: 2022Q4

REPORT INFORMATION
  Report Type: Spontaneous
  Country: US (occurrence: US)
  Receive Date: 20221021
  Receipt Date: 20221025
  Transmission Date: 20230113
  Serious: No
  Sender: FDA-Public Use
  Company Number: US-NOVARTISTESTPH-NVSC2022US237465

PATIENT
  Sex: Male

DRUGS (2)
  1. COSENTYX [Suspect]
     Active Substance: SECUKINUMAB
     Indication: Product used for unknown indication
     Dosage: 300 ML, QMO
     Route: 065
  2. COSENTYX [Suspect]
     Active Substance: SECUKINUMAB
     Dosage: 300 ML, QMO
     Route: 065

REACTIONS (6)
  - Skin disorder [Unknown]
  - Limb discomfort [Unknown]
  - Device defective [Unknown]
  - Accidental exposure to product [Unknown]
  - Device dispensing error [Unknown]
  - Incorrect dose administered [Unknown]
